FAERS Safety Report 7214811-0 (Version None)
Quarter: 2010Q4

REPORT INFORMATION
  Report Type: 
  Country: None (occurrence: None)
  Receive Date: 20101126
  Receipt Date: 20100616
  Transmission Date: 20110411
  Serious: Yes (Hospitalization, Other)
  Sender: FDA-Public Use
  Company Number: CIP09000960

PATIENT
  Sex: Female
  Weight: 64.9 kg

DRUGS (30)
  1. ACTONEL (RISEDRONATE SOIDUM) TABLET, 35MG [Suspect]
     Dosage: 35 MC ONCE WEEKLY, ORAL
     Route: 048
     Dates: start: 20050803, end: 20061201
  2. FOSAMAX [Suspect]
     Dosage: 70 MG
     Dates: start: 20040713, end: 20050101
  3. VAGIFEM [Concomitant]
  4. EFFEXOR /01233801/ (VENLAFAXINE) [Concomitant]
  5. CLONIDINE [Concomitant]
  6. NEURONTIN [Concomitant]
  7. GLUCOSAMINE (GLUCOSAMINE) [Concomitant]
  8. PLAVIX [Concomitant]
  9. ASPIRIN [Concomitant]
  10. ZETIA [Concomitant]
  11. ARIMIDEX [Concomitant]
  12. FOLIC ACID [Concomitant]
  13. THYROID TAB [Concomitant]
  14. VITAMINS NOS (VITAMINS NOS) [Concomitant]
  15. ZEGERID /00661201/ (OMEPRAZOLE) [Concomitant]
  16. VITAMIN B6 [Concomitant]
  17. VITAMIN B-12 [Concomitant]
  18. FLAXSEED OIL (LINUM USITATISSIMUM SEED OIL) [Concomitant]
  19. OMEGA 3 /01334101/ (FISH OIL) [Concomitant]
  20. CALCIUM + VITAMIN D (CALCIUM, COLECALIFEROL) [Concomitant]
  21. ADIPEX /00131703/ (PHENTERMINE HYDROCHLORIDE) [Concomitant]
  22. MIACALCIN [Concomitant]
  23. PURINETHOL [Concomitant]
  24. REMICADE [Concomitant]
  25. CHLORHEXIDINE GLUCONATE [Concomitant]
  26. MELATONIN (MELATONIN) [Concomitant]
  27. ULTRAM (TRADMOL HYDROCHLORIDE) [Concomitant]
  28. REGLAN /00041901/ (METOCLOPRAMIDE) [Concomitant]
  29. PROTONIX [Concomitant]
  30. AMBIEN CR [Concomitant]

REACTIONS (17)
  - BONE ATROPHY [None]
  - BONE DENSITY DECREASED [None]
  - DENTAL NECROSIS [None]
  - DEVICE FAILURE [None]
  - DEVICE RELATED INFECTION [None]
  - EROSIVE OESOPHAGITIS [None]
  - GINGIVAL DISCOLOURATION [None]
  - GINGIVAL PAIN [None]
  - GINGIVAL RECESSION [None]
  - GINGIVAL SWELLING [None]
  - GINGIVAL ULCERATION [None]
  - ORAL DISORDER [None]
  - ORAL INFECTION [None]
  - OSTEONECROSIS OF JAW [None]
  - PERIODONTITIS [None]
  - PULPITIS DENTAL [None]
  - TOOTH DISORDER [None]
